FAERS Safety Report 7321699-6 (Version None)
Quarter: 2011Q1

REPORT INFORMATION
  Report Type: 
  Country: None (occurrence: None)
  Receive Date: 20110228
  Receipt Date: 20100702
  Transmission Date: 20110831
  Serious: Yes (Hospitalization, Other)
  Sender: FDA-Public Use
  Company Number: US-PFIZER INC-2010083900

PATIENT
  Sex: Male

DRUGS (2)
  1. GEODON [Suspect]
  2. CLOZARIL [Suspect]
     Dosage: 300 MG, UNK

REACTIONS (2)
  - CONVULSION [None]
  - SEDATION [None]
